FAERS Safety Report 14987154 (Version 1)
Quarter: 2018Q2

REPORT INFORMATION
  Report Type: Spontaneous
  Country: DE (occurrence: DE)
  Receive Date: 20180608
  Receipt Date: 20180608
  Transmission Date: 20180711
  Serious: Yes (Hospitalization)
  Sender: FDA-Public Use
  Company Number: DE-TEVA-2018-DE-902993

PATIENT
  Age: 64 Year
  Sex: Female

DRUGS (6)
  1. PANTOPRAZOL [Concomitant]
     Active Substance: PANTOPRAZOLE SODIUM
     Dosage: 1-0-0-0
  2. PRIMIDONE. [Suspect]
     Active Substance: PRIMIDONE
     Dosage: 0-0.5-0.5-1
  3. SIMVASTATIN. [Concomitant]
     Active Substance: SIMVASTATIN
     Dosage: 0-0-1-0
  4. METAMIZOL [Concomitant]
     Active Substance: METAMIZOLE SODIUM
     Dosage: REQUIREMENT
  5. MCP [Concomitant]
     Active Substance: METOCLOPRAMIDE HYDROCHLORIDE
     Dosage: REQUIREMENT
  6. RIOPAN [Concomitant]
     Dosage: NK MG, REQUIREMENT

REACTIONS (3)
  - Dyspepsia [Unknown]
  - Nausea [Unknown]
  - Abdominal pain upper [Unknown]
